FAERS Safety Report 13210468 (Version 1)
Quarter: 2017Q1

REPORT INFORMATION
  Report Type: Spontaneous
  Country: CH (occurrence: CH)
  Receive Date: 20170210
  Receipt Date: 20170210
  Transmission Date: 20170428
  Serious: Yes (Other)
  Sender: FDA-Public Use
  Company Number: CH-LHC-2017023

PATIENT
  Age: 35 Year
  Sex: Male

DRUGS (1)
  1. OXYGEN (GENERIC) [Suspect]
     Active Substance: OXYGEN
     Indication: AIR EMBOLISM

REACTIONS (1)
  - Generalised tonic-clonic seizure [Recovered/Resolved]
